FAERS Safety Report 7176017-3 (Version None)
Quarter: 2010Q4

REPORT INFORMATION
  Report Type: 
  Country: None (occurrence: None)
  Receive Date: 20101220
  Receipt Date: 20101209
  Transmission Date: 20110411
  Serious: Yes (Hospitalization)
  Sender: FDA-Public Use
  Company Number: US-BIOGENIDEC-2010BI033509

PATIENT
  Age: 24 Year
  Sex: Female
  Weight: 108 kg

DRUGS (2)
  1. TYSABRI [Suspect]
     Indication: MULTIPLE SCLEROSIS
     Route: 042
     Dates: start: 20100324
  2. FLU VACCINE [Concomitant]
     Indication: ANTIVIRAL PROPHYLAXIS
     Dates: start: 20101028

REACTIONS (11)
  - DEHYDRATION [None]
  - DYSARTHRIA [None]
  - ELEVATED MOOD [None]
  - HEMIPARESIS [None]
  - INFLUENZA [None]
  - JUDGEMENT IMPAIRED [None]
  - MENTAL IMPAIRMENT [None]
  - MULTIPLE SCLEROSIS [None]
  - MULTIPLE SCLEROSIS RELAPSE [None]
  - PYREXIA [None]
  - SOMNOLENCE [None]
